FAERS Safety Report 5371440-1 (Version None)
Quarter: 2007Q2

REPORT INFORMATION
  Report Type: 
  Country: None (occurrence: None)
  Receive Date: 20070622
  Receipt Date: 20070611
  Transmission Date: 20071010
  Serious: Yes (Hospitalization)
  Sender: FDA-Public Use
  Company Number: 2007AL002351

PATIENT
  Age: 36 Year
  Sex: Male

DRUGS (5)
  1. LORAZEPAM [Suspect]
     Dosage: 0.5 MG; TID; PO
     Route: 048
  2. CLOZAPINE [Concomitant]
  3. HALOPERIDOL [Concomitant]
  4. QUETIAPINE [Concomitant]
  5. DIPHENHYDRAMINE HCL [Concomitant]

REACTIONS (12)
  - AGGRESSION [None]
  - CONDITION AGGRAVATED [None]
  - DELUSION [None]
  - DRUG TOXICITY [None]
  - HALLUCINATION, AUDITORY [None]
  - MENTAL DISORDER [None]
  - PAIN [None]
  - PSYCHOTIC DISORDER [None]
  - SALIVARY HYPERSECRETION [None]
  - SUICIDAL IDEATION [None]
  - THERAPEUTIC RESPONSE DECREASED [None]
  - TREATMENT NONCOMPLIANCE [None]
